FAERS Safety Report 24134652 (Version 1)
Quarter: 2024Q3

REPORT INFORMATION
  Report Type: Spontaneous
  Country: FR (occurrence: FR)
  Receive Date: 20240725
  Receipt Date: 20240725
  Transmission Date: 20241016
  Serious: Yes (Death, Other)
  Sender: SANOFI AVENTIS
  Company Number: FR-SANOFI-02144295

PATIENT
  Age: 77 Year

DRUGS (1)
  1. RIFAMPIN [Suspect]
     Active Substance: RIFAMPIN
     Indication: Osteomyelitis
     Dosage: 1200 MG

REACTIONS (2)
  - Death [Fatal]
  - Incorrect dose administered [Unknown]
